FAERS Safety Report 17543971 (Version 2)
Quarter: 2023Q1

REPORT INFORMATION
  Report Type: Spontaneous
  Country: IT (occurrence: IT)
  Receive Date: 20200316
  Receipt Date: 20230123
  Transmission Date: 20230417
  Serious: Yes (Other)
  Sender: FDA-Public Use
  Company Number: IT-NOVARTISPH-NVSC2020IT067102

PATIENT
  Age: 43 Year
  Sex: Female

DRUGS (4)
  1. FULVESTRANT [Suspect]
     Active Substance: FULVESTRANT
     Indication: Malignant peritoneal neoplasm
     Dosage: UNK
     Route: 065
     Dates: start: 201907
  2. PALBOCICLIB [Suspect]
     Active Substance: PALBOCICLIB
     Indication: Malignant peritoneal neoplasm
     Dosage: UNK
     Route: 065
     Dates: start: 201907
  3. DENOSUMAB [Suspect]
     Active Substance: DENOSUMAB
     Indication: Malignant peritoneal neoplasm
     Dosage: UNK
     Route: 065
     Dates: start: 201907
  4. CISPLATIN [Concomitant]
     Active Substance: CISPLATIN
     Indication: Product used for unknown indication
     Dosage: 1 UNK, QW
     Route: 065
     Dates: start: 201909

REACTIONS (2)
  - Neoplasm progression [Unknown]
  - Thrombocytopenia [Unknown]

NARRATIVE: CASE EVENT DATE: 20190901
